FAERS Safety Report 18213501 (Version 1)
Quarter: 2020Q3

REPORT INFORMATION
  Report Type: Spontaneous
  Country: US (occurrence: US)
  Receive Date: 20200831
  Receipt Date: 20200831
  Transmission Date: 20201103
  Serious: Yes (Hospitalization)
  Sender: FDA-Public Use
  Company Number: None

PATIENT
  Sex: Female

DRUGS (11)
  1. AMLODIPINE [Concomitant]
     Active Substance: AMLODIPINE BESYLATE
  2. TACROLIMUS. [Suspect]
     Active Substance: TACROLIMUS
     Indication: KIDNEY MALFORMATION
     Route: 048
     Dates: start: 20170209
  3. CARVEDILOL. [Concomitant]
     Active Substance: CARVEDILOL
  4. FUROSEMIDE. [Concomitant]
     Active Substance: FUROSEMIDE
  5. VITAMIN B12 [Concomitant]
     Active Substance: CYANOCOBALAMIN
  6. ROPINROLE [Concomitant]
     Active Substance: ROPINIROLE
  7. HYDRALAZINE [Concomitant]
     Active Substance: HYDRALAZINE HYDROCHLORIDE
  8. MELATONIN [Concomitant]
     Active Substance: MELATONIN
  9. DOXAZOSIN [Concomitant]
     Active Substance: DOXAZOSIN MESYLATE
  10. VITAMIN D3 [Concomitant]
     Active Substance: CHOLECALCIFEROL
  11. MAGNESIUM [Concomitant]
     Active Substance: MAGNESIUM

REACTIONS (2)
  - Cardiac failure [None]
  - Hypertension [None]
